FAERS Safety Report 8506600-1 (Version None)
Quarter: 2012Q3

REPORT INFORMATION
  Report Type: 
  Country: None (occurrence: None)
  Receive Date: 20120702
  Receipt Date: 20120615
  Transmission Date: 20120928
  Serious: Yes (Other)
  Sender: FDA-Public Use
  Company Number: 2012SP033347

PATIENT
  Sex: Female

DRUGS (4)
  1. PEG-INTRON [Suspect]
     Indication: HEPATITIS C
     Dates: start: 20120318
  2. VICTRELIS [Suspect]
     Indication: HEPATITIS C
     Dates: start: 20120415
  3. RIBAVIRIN [Suspect]
     Indication: HEPATITIS C
     Dates: start: 20120318
  4. MORPHINE [Suspect]
     Indication: PRODUCT USED FOR UNKNOWN INDICATION

REACTIONS (10)
  - NAUSEA [None]
  - TREMOR [None]
  - DRUG DOSE OMISSION [None]
  - DRUG WITHDRAWAL SYNDROME [None]
  - COLD SWEAT [None]
  - VOMITING [None]
  - CONFUSIONAL STATE [None]
  - DIARRHOEA [None]
  - PRESYNCOPE [None]
  - NECK PAIN [None]
